FAERS Safety Report 6764004-6 (Version None)
Quarter: 2010Q2

REPORT INFORMATION
  Report Type: 
  Country: None (occurrence: None)
  Receive Date: 20100610
  Receipt Date: 20100528
  Transmission Date: 20101027
  Serious: Yes (Other)
  Sender: FDA-Public Use
  Company Number: FR-ELI_LILLY_AND_COMPANY-FR201003004296

PATIENT
  Age: 37 Year
  Sex: Female
  Weight: 68 kg

DRUGS (2)
  1. CYMBALTA [Suspect]
     Indication: FIBROMYALGIA
     Dosage: 60 MG, DAILY (1/D)
     Route: 048
     Dates: start: 20100226, end: 20100301
  2. RIVOTRIL [Concomitant]
     Indication: FIBROMYALGIA
     Dosage: 5 TO10 DROPS DAILY, UNK
     Route: 048
     Dates: start: 20100210

REACTIONS (7)
  - ASTHENIA [None]
  - FATIGUE [None]
  - INCOHERENT [None]
  - LOSS OF CONSCIOUSNESS [None]
  - PARAESTHESIA [None]
  - TACHYCARDIA [None]
  - TREMOR [None]
